FAERS Safety Report 9523558 (Version 1)
Quarter: 2013Q3

REPORT INFORMATION
  Report Type: Spontaneous
  Country: US (occurrence: US)
  Receive Date: 20130913
  Receipt Date: 20130913
  Transmission Date: 20140515
  Serious: Yes (Other)
  Sender: FDA-Public Use
  Company Number: PHEH2013US018915

PATIENT
  Age: 48 Year
  Sex: Female

DRUGS (5)
  1. EXFORGE HCT [Suspect]
     Dosage: 1 DF (160MG VALS/5MG AMLO/12.5MG HCT), QD
     Route: 048
  2. EXFORGE HCT [Suspect]
     Dosage: 1 DF (160MG VALS/5MG AMLO/12.5MG HCT), BID
     Route: 048
  3. EXFORGE [Suspect]
     Dosage: 1 DF (160MG VALS, 10MG AMLO), UNK
     Route: 048
  4. LISINOPRIL [Suspect]
  5. CLONIDINE [Suspect]

REACTIONS (6)
  - Blood pressure increased [Unknown]
  - Headache [Unknown]
  - Panic attack [Unknown]
  - Crying [Unknown]
  - Incoherent [Unknown]
  - Thinking abnormal [Unknown]
